FAERS Safety Report 15379011 (Version 1)
Quarter: 2018Q3

REPORT INFORMATION
  Report Type: Spontaneous
  Country: JP (occurrence: JP)
  Receive Date: 20180913
  Receipt Date: 20180913
  Transmission Date: 20181010
  Serious: Yes (Death, Hospitalization, Other)
  Sender: FDA-Public Use
  Company Number: JP-ELI_LILLY_AND_COMPANY-JP201809004049

PATIENT
  Age: 74 Year
  Sex: Male

DRUGS (4)
  1. DULOXETINE HYDROCHLORIDE. [Suspect]
     Active Substance: DULOXETINE HYDROCHLORIDE
     Indication: DEPRESSION
     Dosage: UNK
     Route: 048
     Dates: start: 20170421, end: 20180804
  2. URIEF [Concomitant]
     Active Substance: SILODOSIN
  3. VALSARTAN. [Concomitant]
     Active Substance: VALSARTAN
  4. ETIZOLAM [Concomitant]
     Active Substance: ETIZOLAM

REACTIONS (3)
  - Atrial fibrillation [Fatal]
  - Pneumonia [Unknown]
  - Hypersensitivity vasculitis [Recovering/Resolving]

NARRATIVE: CASE EVENT DATE: 20180730
